FAERS Safety Report 5669656-X (Version None)
Quarter: 2008Q1

REPORT INFORMATION
  Report Type: 
  Country: None (occurrence: None)
  Receive Date: 20080317
  Receipt Date: 20080310
  Transmission Date: 20080703
  Serious: Yes (Hospitalization, Other)
  Sender: FDA-Public Use
  Company Number: AT-SANOFI-SYNTHELABO-F01200800411

PATIENT

DRUGS (4)
  1. FOLINIC ACID [Suspect]
     Dosage: UNK
     Route: 041
  2. FLUOROURACIL [Suspect]
     Dosage: UNK
     Route: 042
  3. OXALIPLATIN [Suspect]
     Indication: COLON CANCER
     Dosage: UNK
     Route: 041
  4. CETUXIMAB [Suspect]
     Dosage: UNK
     Route: 041

REACTIONS (1)
  - CHOLECYSTITIS [None]
